FAERS Safety Report 11362217 (Version 2)
Quarter: 2016Q1

REPORT INFORMATION
  Report Type: Spontaneous
  Country: US (occurrence: US)
  Receive Date: 20150810
  Receipt Date: 20160225
  Transmission Date: 20160525
  Serious: Yes (Hospitalization, Other)
  Sender: FDA-Public Use
  Company Number: US-BAYER-2015-396529

PATIENT
  Age: 27 Year
  Sex: Female
  Weight: 49.89 kg

DRUGS (6)
  1. MIRENA [Suspect]
     Active Substance: LEVONORGESTREL
     Indication: CONTRACEPTION
     Dosage: 20 MCG/24HR, CONT
     Route: 015
     Dates: start: 201110, end: 20141227
  2. DEMEROL [Concomitant]
     Active Substance: MEPERIDINE HYDROCHLORIDE
  3. GENTAMYCIN [Concomitant]
     Active Substance: GENTAMICIN
  4. HYDROCODONE W/ACETAMINOPHEN [Concomitant]
     Active Substance: ACETAMINOPHEN\HYDROCODONE BITARTRATE
  5. CLINDAMYCIN [Concomitant]
     Active Substance: CLINDAMYCIN\CLINDAMYCIN PHOSPHATE
  6. AMPICILLIN [Concomitant]
     Active Substance: AMPICILLIN

REACTIONS (9)
  - Genital haemorrhage [None]
  - Drug ineffective [None]
  - Pain [None]
  - Device issue [None]
  - Device failure [None]
  - Uterine perforation [None]
  - Abortion spontaneous [None]
  - Pregnancy with contraceptive device [None]
  - Vomiting [None]

NARRATIVE: CASE EVENT DATE: 2013
